FAERS Safety Report 23361315 (Version 4)
Quarter: 2024Q1

REPORT INFORMATION
  Report Type: Spontaneous
  Country: US (occurrence: US)
  Receive Date: 20240103
  Receipt Date: 20240206
  Transmission Date: 20240409
  Serious: Yes (Disabling)
  Sender: FDA-Public Use
  Company Number: US-SANOFI-01890088

PATIENT
  Age: 86 Year
  Sex: Male

DRUGS (1)
  1. LANTUS SOLOSTAR [Suspect]
     Active Substance: INSULIN GLARGINE
     Indication: Type 2 diabetes mellitus
     Dosage: 34 IU, QD

REACTIONS (5)
  - Wheelchair user [Unknown]
  - Anger [Unknown]
  - Disorganised speech [Unknown]
  - Blood glucose increased [Unknown]
  - Device issue [Unknown]
